FAERS Safety Report 4742524-3 (Version None)
Quarter: 2005Q3

REPORT INFORMATION
  Report Type: 
  Country: None (occurrence: None)
  Receive Date: 20050811
  Receipt Date: 20050729
  Transmission Date: 20060218
  Serious: Yes (Hospitalization)
  Sender: FDA-Public Use
  Company Number: DE-BOEHRINGER INGELHEIM PHARMACEUTICALS, INC.-2005-DE-03085DE

PATIENT
  Sex: Female
  Weight: 68 kg

DRUGS (5)
  1. MICARDIS [Suspect]
     Indication: HYPERTONIA
  2. AMLODIPINE [Concomitant]
     Indication: HYPERTONIA
     Route: 048
  3. ASS 100 [Concomitant]
     Indication: CARDIAC DISORDER
     Route: 048
  4. SIMVAHEXAL [Concomitant]
     Indication: HYPERCHOLESTEROLAEMIA
     Route: 048
  5. METOHEXAL [Concomitant]
     Indication: ARRHYTHMIA
     Route: 048

REACTIONS (3)
  - ADVERSE EVENT [None]
  - ANGINA PECTORIS [None]
  - ATRIAL FIBRILLATION [None]
